FAERS Safety Report 21592071 (Version 1)
Quarter: 2022Q4

REPORT INFORMATION
  Report Type: Spontaneous
  Country: US (occurrence: None)
  Receive Date: 20221112
  Receipt Date: 20221112
  Transmission Date: 20230113
  Serious: Yes (Other)
  Sender: FDA-Public Use
  Company Number: None

PATIENT
  Age: 28 Year
  Sex: Female
  Weight: 46.35 kg

DRUGS (5)
  1. SUNOSI [Suspect]
     Active Substance: SOLRIAMFETOL
     Indication: Narcolepsy
     Dosage: OTHER QUANTITY : 1 TABLET(S) ORAL?
     Route: 048
     Dates: start: 20221111, end: 20221111
  2. ADDERALL [Concomitant]
     Active Substance: AMPHETAMINE ASPARTATE\AMPHETAMINE SULFATE\DEXTROAMPHETAMINE SACCHARATE\DEXTROAMPHETAMINE SULFATE
  3. Shaklee multi vitamin [Concomitant]
  4. ALLEGRA [Concomitant]
     Active Substance: FEXOFENADINE HYDROCHLORIDE
  5. aller-flo nasal spray [Concomitant]

REACTIONS (10)
  - Hyperventilation [None]
  - Crying [None]
  - Hyperhidrosis [None]
  - Tremor [None]
  - Anxiety [None]
  - Paranoia [None]
  - Mania [None]
  - Impulsive behaviour [None]
  - Thinking abnormal [None]
  - Psychomotor hyperactivity [None]

NARRATIVE: CASE EVENT DATE: 20221111
